FAERS Safety Report 21046034 (Version 3)
Quarter: 2022Q3

REPORT INFORMATION
  Report Type: Report from Study
  Country: US (occurrence: US)
  Receive Date: 20220706
  Receipt Date: 20220909
  Transmission Date: 20221026
  Serious: Yes (Hospitalization, Other)
  Sender: FDA-Public Use
  Company Number: US-BRISTOL-MYERS SQUIBB COMPANY-2022-062841

PATIENT
  Age: 75 Year
  Sex: Male
  Weight: 113.39 kg

DRUGS (10)
  1. REVLIMID [Suspect]
     Active Substance: LENALIDOMIDE
     Indication: Mantle cell lymphoma
     Dosage: FOR 21 DAYS 7 DAY OFF
     Route: 048
     Dates: start: 20210818
  2. REVLIMID [Suspect]
     Active Substance: LENALIDOMIDE
     Dosage: ONCE DAILY FOR 21 DAYS, THEN 7 DAYS OFF
     Route: 048
     Dates: start: 20210818
  3. REVLIMID [Suspect]
     Active Substance: LENALIDOMIDE
     Dosage: ONCE A DAY, 21 OF 28 DAYS
     Route: 048
  4. VITAMIN D3 [Concomitant]
     Active Substance: CHOLECALCIFEROL
  5. LUPRON [Concomitant]
     Active Substance: LEUPROLIDE ACETATE
  6. ACYCLOVIR [Concomitant]
     Active Substance: ACYCLOVIR
  7. XARELTO [Concomitant]
     Active Substance: RIVAROXABAN
  8. LISINOPRIL [Concomitant]
     Active Substance: LISINOPRIL
  9. VITAMIN B12 [Concomitant]
     Active Substance: CYANOCOBALAMIN
  10. IRON [Concomitant]
     Active Substance: IRON

REACTIONS (4)
  - Atrial fibrillation [Unknown]
  - Thyroid disorder [Unknown]
  - Loss of consciousness [Unknown]
  - Aphonia [Unknown]
